FAERS Safety Report 4674337-5 (Version None)
Quarter: 2005Q2

REPORT INFORMATION
  Report Type: 
  Country: None (occurrence: None)
  Receive Date: 20050524
  Receipt Date: 20050425
  Transmission Date: 20051028
  Serious: Yes (Other)
  Sender: FDA-Public Use
  Company Number: US_0504116593

PATIENT

DRUGS (1)
  1. FORTEO [Suspect]
     Dates: start: 20040804

REACTIONS (5)
  - ATRIAL FIBRILLATION [None]
  - HEADACHE [None]
  - INJECTION SITE PAIN [None]
  - OVERDOSE [None]
  - PHARMACEUTICAL PRODUCT COMPLAINT [None]
